FAERS Safety Report 8736512 (Version 7)
Quarter: 2013Q2

REPORT INFORMATION
  Report Type: Report from Study
  Country: AU (occurrence: AU)
  Receive Date: 20120822
  Receipt Date: 20130605
  Transmission Date: 20140414
  Serious: Yes (Other)
  Sender: FDA-Public Use
  Company Number: AU-BRISTOL-MYERS SQUIBB COMPANY-16855736

PATIENT
  Age: 36 Year
  Sex: Female
  Weight: 89 kg

DRUGS (11)
  1. ORENCIA [Suspect]
     Indication: RHEUMATOID ARTHRITIS
     Dosage: CUMULATIVE DOSE:750?CYC:30?LAST INF-04-MAR-13
     Route: 042
     Dates: start: 20100628, end: 20130517
  2. METHOTREXATE [Concomitant]
     Route: 048
  3. FOLIC ACID [Concomitant]
     Dosage: 1DF=1 TAB 12HRS LATER
     Route: 048
  4. VENTOLIN [Concomitant]
     Dosage: VENTOLIN PUFFER.
  5. SERETIDE [Concomitant]
     Dosage: SERETIDE PUFFER
  6. PARIET [Concomitant]
     Dosage: 1DF=1 UNIT NOS
     Route: 048
  7. PANADEINE FORTE [Concomitant]
     Route: 048
  8. STEMETIL [Concomitant]
     Route: 048
  9. FOLINIC ACID [Concomitant]
     Dosage: 1 DF: 1 TAB, 12 HRS LATER
     Route: 048
  10. SERETIDE [Concomitant]
  11. FEFOL [Concomitant]
     Dosage: IRON TABLETS
     Route: 048
     Dates: start: 20121115

REACTIONS (9)
  - Vertigo positional [Not Recovered/Not Resolved]
  - Dry eye [Not Recovered/Not Resolved]
  - Ocular hyperaemia [Not Recovered/Not Resolved]
  - Eye swelling [Not Recovered/Not Resolved]
  - Blood test abnormal [Unknown]
  - Drug ineffective [Unknown]
  - Sinus congestion [Not Recovered/Not Resolved]
  - Blood iron decreased [Not Recovered/Not Resolved]
  - Lower respiratory tract infection [Recovered/Resolved]
